FAERS Safety Report 7278806-3 (Version None)
Quarter: 2011Q1

REPORT INFORMATION
  Report Type: 
  Country: None (occurrence: None)
  Receive Date: 20110207
  Receipt Date: 20110128
  Transmission Date: 20110831
  Serious: Yes (Death, Life-Threatening, Other)
  Sender: FDA-Public Use
  Company Number: US-BAXTER-2010BH030412

PATIENT
  Age: 48 Year
  Sex: Male

DRUGS (4)
  1. DOPAMINE HCL IN 5% DEXTROSE [Suspect]
     Route: 041
     Dates: start: 20101216
  2. DOPAMINE HCL IN 5% DEXTROSE [Suspect]
     Indication: BLOOD PRESSURE MANAGEMENT
     Route: 041
     Dates: end: 20101216
  3. CAD MEDS [Concomitant]
     Indication: CORONARY ARTERY DISEASE
     Route: 065
  4. DOPAMINE HCL IN 5% DEXTROSE [Suspect]
     Route: 041
     Dates: start: 20101216, end: 20101216

REACTIONS (3)
  - DRUG INEFFECTIVE [None]
  - DRUG ADMINISTRATION ERROR [None]
  - CARDIAC ARREST [None]
